FAERS Safety Report 7417618-4 (Version None)
Quarter: 2011Q2

REPORT INFORMATION
  Report Type: 
  Country: None (occurrence: None)
  Receive Date: 20110415
  Receipt Date: 20110404
  Transmission Date: 20111010
  Serious: Yes (Other)
  Sender: FDA-Public Use
  Company Number: PHFR2011GB01912

PATIENT
  Sex: Female
  Weight: 56.5 kg

DRUGS (10)
  1. FLUOXETINE [Concomitant]
     Indication: DEPRESSED MOOD
     Dosage: 40MG
     Route: 048
     Dates: start: 20090101
  2. CLOZARIL [Suspect]
     Dosage: 200MG
     Route: 048
     Dates: start: 20110317
  3. SULPIRIDE [Concomitant]
     Indication: SCHIZOPHRENIA
     Dosage: 400MG
     Route: 048
     Dates: start: 20080101
  4. FOLIC ACID [Concomitant]
     Dosage: 5MG
     Route: 048
     Dates: start: 20100101
  5. DIAZEPAM [Concomitant]
     Indication: AGITATION
     Dosage: 8MG
     Route: 048
     Dates: start: 20080101
  6. QUETIAPINE [Concomitant]
  7. CLOZARIL [Suspect]
     Indication: SCHIZOPHRENIA
     Dosage: BETWEEN 150MG AND 225MG
     Route: 048
     Dates: start: 19951003, end: 20070720
  8. ORPHENADRINE CITRATE [Concomitant]
     Dosage: 200MGUNK
     Dates: start: 20100101
  9. LANSOPRAZOLE [Concomitant]
     Indication: GASTROOESOPHAGEAL REFLUX DISEASE
     Dosage: 15MG
     Route: 048
  10. BISOPROLOL [Concomitant]
     Indication: HYPERTENSION
     Dosage: 5MG
     Route: 048

REACTIONS (6)
  - ELECTROCARDIOGRAM ABNORMAL [None]
  - HYPERTENSION [None]
  - VENTRICULAR EXTRASYSTOLES [None]
  - MENTAL IMPAIRMENT [None]
  - CONNECTIVE TISSUE DISORDER [None]
  - DIZZINESS [None]
